FAERS Safety Report 4425592-8 (Version None)
Quarter: 2004Q3

REPORT INFORMATION
  Report Type: 
  Country: None (occurrence: None)
  Receive Date: 20040810
  Receipt Date: 20040729
  Transmission Date: 20050211
  Serious: Yes (Death)
  Sender: FDA-Public Use
  Company Number: S04-USA-04678-01

PATIENT
  Age: 54 Year
  Sex: Female

DRUGS (2)
  1. LEXAPRO [Suspect]
     Indication: DEPRESSION
  2. PROPOXYPHENE HCL [Suspect]

REACTIONS (6)
  - ACCIDENT [None]
  - CHOLECYSTECTOMY [None]
  - DRUG TOXICITY [None]
  - INJURY [None]
  - PULMONARY CONGESTION [None]
  - PULMONARY OEDEMA [None]
